FAERS Safety Report 12885299 (Version 2)
Quarter: 2016Q4

REPORT INFORMATION
  Report Type: Spontaneous
  Country: FI (occurrence: FI)
  Receive Date: 20161026
  Receipt Date: 20161110
  Transmission Date: 20170207
  Serious: Yes (Other)
  Sender: FDA-Public Use
  Company Number: FI-ELI_LILLY_AND_COMPANY-FI201610005883

PATIENT
  Age: 29 Year
  Sex: Female

DRUGS (5)
  1. DIAPAM                             /00017001/ [Concomitant]
     Dosage: UNK, UNKNOWN
     Route: 065
  2. ANTABUS [Concomitant]
     Active Substance: DISULFIRAM
     Dosage: UNK, UNKNOWN
     Route: 065
  3. ZYPADHERA [Suspect]
     Active Substance: OLANZAPINE PAMOATE
     Indication: PSYCHOTIC DISORDER
     Dosage: 210 MG, 2/M
     Route: 030
     Dates: start: 201506
  4. ABILIFY MAINTENA [Concomitant]
     Active Substance: ARIPIPRAZOLE
     Dosage: UNK, UNKNOWN
     Route: 065
  5. LEVOZIN                            /00038602/ [Concomitant]
     Active Substance: LEVOMEPROMAZINE MALEATE
     Dosage: UNK, UNKNOWN
     Route: 065

REACTIONS (4)
  - Somnolence [Unknown]
  - Malaise [Unknown]
  - Hypotension [Unknown]
  - Fatigue [Unknown]
